FAERS Safety Report 9197925 (Version 1)
Quarter: 2013Q1

REPORT INFORMATION
  Report Type: Spontaneous
  Country: US (occurrence: US)
  Receive Date: 20130328
  Receipt Date: 20130328
  Transmission Date: 20140127
  Serious: Yes (Hospitalization)
  Sender: FDA-Public Use
  Company Number: US-B.I. PHARMACEUTICALS,INC./RIDGEFIELD-2013-BI-07795BP

PATIENT
  Age: 55 None
  Sex: Male

DRUGS (12)
  1. PRADAXA [Suspect]
     Indication: ATRIAL FIBRILLATION
     Dosage: 300 MG
     Route: 048
     Dates: start: 20110629, end: 2012
  2. PRADAXA [Suspect]
     Dosage: 300 MG
     Route: 048
     Dates: start: 20130307
  3. FUROSEMIDE [Concomitant]
     Dosage: 20 MG
     Route: 048
  4. CARVEDILOL [Concomitant]
     Dosage: 50 MG
     Route: 048
  5. LIPITOR [Concomitant]
     Dosage: 10 MG
     Route: 048
  6. GLIPIZIDE [Concomitant]
     Indication: DIABETES MELLITUS
     Dosage: STRENGTH: 5 MG; DAILY DOSE: 5 MG
     Route: 048
  7. ENALAPRIL [Concomitant]
     Dosage: 20 MG
     Route: 048
  8. ASPIRIN [Concomitant]
     Dosage: 81 MG
     Route: 048
  9. DIGOXIN [Concomitant]
     Dosage: 25 MG
     Route: 048
  10. REGULAR INSULIN [Concomitant]
     Route: 058
  11. SPIRONOLACTONE [Concomitant]
     Dosage: STRENGTH: 25 MG; DAILY DOSE: 25 MG
     Route: 048
  12. INSULIN 70/30 [Concomitant]
     Dosage: 24 U
     Route: 058

REACTIONS (3)
  - Tooth abscess [Recovered/Resolved]
  - Atrial fibrillation [Not Recovered/Not Resolved]
  - Blood glucose increased [Not Recovered/Not Resolved]
